FAERS Safety Report 9463639 (Version 2)
Quarter: 2013Q3

REPORT INFORMATION
  Report Type: Spontaneous
  Country: GB (occurrence: GB)
  Receive Date: 20130819
  Receipt Date: 20130819
  Transmission Date: 20140515
  Serious: Yes (Other)
  Sender: FDA-Public Use
  Company Number: PHFR2013GB001885

PATIENT
  Sex: Male

DRUGS (3)
  1. CLOZARIL [Suspect]
     Indication: SCHIZOPHRENIA
     Dosage: 325 MG, (150 MG MANE 175 MG NOCTE)
     Route: 048
     Dates: start: 20130116
  2. CLOZARIL [Suspect]
     Dosage: UNK
     Dates: end: 20130502
  3. SOLIFENACIN [Concomitant]
     Indication: URINARY INCONTINENCE
     Dosage: UNK
     Dates: end: 20130322

REACTIONS (6)
  - Ataxia [Recovering/Resolving]
  - Incoherent [Recovering/Resolving]
  - Dysarthria [Recovering/Resolving]
  - Urinary incontinence [Not Recovered/Not Resolved]
  - Confusional state [Recovering/Resolving]
  - Heart rate increased [Recovered/Resolved]
